FAERS Safety Report 9200491 (Version 2)
Quarter: 2013Q2

REPORT INFORMATION
  Report Type: Spontaneous
  Country: GB (occurrence: GB)
  Receive Date: 20130329
  Receipt Date: 20130610
  Transmission Date: 20140414
  Serious: Yes (Death, Life-Threatening, Hospitalization, Other)
  Sender: FDA-Public Use
  Company Number: GB-ASTRAZENECA-2013SE19872

PATIENT
  Sex: Male

DRUGS (4)
  1. CASODEX [Suspect]
     Indication: PROSTATE CANCER
     Route: 048
     Dates: start: 201202
  2. CASODEX [Suspect]
     Indication: PROSTATE CANCER
     Route: 048
  3. PROSTAP [Concomitant]
  4. DEXAPEPSIL [Concomitant]

REACTIONS (8)
  - Death [Fatal]
  - Pulmonary oedema [Unknown]
  - Myocardial infarction [Unknown]
  - Thrombosis [Unknown]
  - Diarrhoea [Recovered/Resolved]
  - Dyspnoea [Unknown]
  - Muscular weakness [Unknown]
  - Renal disorder [Unknown]
